FAERS Safety Report 24140179 (Version 2)
Quarter: 2024Q3

REPORT INFORMATION
  Report Type: Report from Study
  Country: US (occurrence: US)
  Receive Date: 20240726
  Receipt Date: 20240829
  Transmission Date: 20241017
  Serious: Yes (Hospitalization, Other)
  Sender: ABBVIE
  Company Number: US-ABBVIE-5850980

PATIENT
  Age: 81 Year
  Sex: Male
  Weight: 109 kg

DRUGS (2)
  1. CREON [Suspect]
     Active Substance: PANCRELIPASE AMYLASE\PANCRELIPASE LIPASE\PANCRELIPASE PROTEASE
     Indication: Pancreatic failure
     Dosage: 3 CAPS EACH MEAL AND 1 CAP EACH SNACK?FORM STRENGTH: 36000 UNIT
     Route: 048
     Dates: start: 2017
  2. LANTISEPTIC SKIN PROTECTANT [Concomitant]
     Active Substance: LANOLIN
     Indication: Diabetes mellitus

REACTIONS (4)
  - Benign neoplasm of adrenal gland [Recovering/Resolving]
  - Tumour pain [Unknown]
  - Diarrhoea [Not Recovered/Not Resolved]
  - Procedural pain [Recovering/Resolving]

NARRATIVE: CASE EVENT DATE: 20240101
